FAERS Safety Report 11979449 (Version 1)
Quarter: 2016Q1

REPORT INFORMATION
  Report Type: Spontaneous
  Country: DE (occurrence: DE)
  Receive Date: 20160129
  Receipt Date: 20160129
  Transmission Date: 20160526
  Serious: Yes (Other)
  Sender: FDA-Public Use
  Company Number: DE-DEP_13503_2016

PATIENT
  Age: 51 Year
  Sex: Female
  Weight: 62 kg

DRUGS (1)
  1. PALEXIA [Suspect]
     Active Substance: TAPENTADOL HYDROCHLORIDE
     Indication: ANALGESIC THERAPY
     Dosage: 20 MG/ML, UNK
     Route: 048
     Dates: start: 20140331, end: 20160112

REACTIONS (2)
  - Dental caries [Recovering/Resolving]
  - Periodontitis [Recovering/Resolving]

NARRATIVE: CASE EVENT DATE: 20160112
